FAERS Safety Report 5191673-7 (Version None)
Quarter: 2006Q4

REPORT INFORMATION
  Report Type: 
  Country: None (occurrence: None)
  Receive Date: 20061219
  Receipt Date: 20061207
  Transmission Date: 20070319
  Serious: Yes (Other)
  Sender: FDA-Public Use
  Company Number: 2006152351

PATIENT
  Age: 79 Year
  Sex: Male
  Weight: 90.7194 kg

DRUGS (3)
  1. LIPITOR [Suspect]
     Indication: BLOOD CHOLESTEROL INCREASED
     Dosage: 20 MG (20 MG, 1 IN 1 D)
     Dates: start: 20061205, end: 20061206
  2. GLUCOPHAGE [Concomitant]
  3. DIABETA [Concomitant]

REACTIONS (9)
  - ANOREXIA [None]
  - BONE DISORDER [None]
  - FALL [None]
  - GAIT DISTURBANCE [None]
  - HEADACHE [None]
  - MALAISE [None]
  - MYALGIA [None]
  - TREMOR [None]
  - URINARY INCONTINENCE [None]
